FAERS Safety Report 13268094 (Version 2)
Quarter: 2017Q2

REPORT INFORMATION
  Report Type: Report from Study
  Country: US (occurrence: US)
  Receive Date: 20170224
  Receipt Date: 20170516
  Transmission Date: 20170830
  Serious: Yes (Other)
  Sender: FDA-Public Use
  Company Number: US-BAYER-2017-032949

PATIENT
  Age: 57 Year
  Sex: Male

DRUGS (1)
  1. STIVARGA [Suspect]
     Active Substance: REGORAFENIB
     Indication: COLORECTAL CANCER
     Dosage: DAILY DOSE 160 MG
     Route: 048
     Dates: start: 20170208, end: 20170214

REACTIONS (6)
  - Fatigue [None]
  - Blister [None]
  - Palmar-plantar erythrodysaesthesia syndrome [None]
  - Bedridden [None]
  - Peripheral swelling [None]
  - Pain [None]
